FAERS Safety Report 16131394 (Version 1)
Quarter: 2019Q1

REPORT INFORMATION
  Report Type: Spontaneous
  Country: CN (occurrence: CN)
  Receive Date: 20190328
  Receipt Date: 20190328
  Transmission Date: 20190418
  Serious: Yes (Other)
  Sender: FDA-Public Use
  Company Number: CN-BAXTER-2019BAX006077

PATIENT
  Age: 50 Year
  Sex: Female
  Weight: 46 kg

DRUGS (12)
  1. ENDOXAN [Suspect]
     Active Substance: CYCLOPHOSPHAMIDE
     Indication: BREAST CANCER
     Dosage: DOSAGE FORM: INJECTION, ENDOXAN + NS, 1ST CHEMOTHERAPY
     Route: 042
  2. 0.9% SODIUM CHLORIDE INJECTION [Suspect]
     Active Substance: SODIUM CHLORIDE
     Dosage: PHARMORUBICIN + NS, 1ST CHEMOTHERAPY
     Route: 041
     Dates: start: 20190126, end: 20190126
  3. PHARMORUBICIN [Suspect]
     Active Substance: EPIRUBICIN
     Dosage: PHARMORUBICIN + NS, DOSE RE-INTRODUCED
     Route: 041
  4. ENDOXAN [Suspect]
     Active Substance: CYCLOPHOSPHAMIDE
     Dosage: DOSAGE FORM: INJECTION, ENDOXAN + NS, 2ND CHEMOTHERAPY
     Route: 042
     Dates: start: 20190126, end: 20190126
  5. ENDOXAN [Suspect]
     Active Substance: CYCLOPHOSPHAMIDE
     Dosage: DOSAGE FORM: INJECTION, ENDOXAN + NS, DOSE RE-INTRODUCED
     Route: 042
  6. PHARMORUBICIN [Suspect]
     Active Substance: EPIRUBICIN
     Indication: BREAST CANCER
     Dosage: PHARMORUBICIN + NS, 1ST CHEMOTHERAPY
     Route: 041
  7. 0.9% SODIUM CHLORIDE INJECTION [Suspect]
     Active Substance: SODIUM CHLORIDE
     Indication: MEDICATION DILUTION
     Dosage: ENDOXAN + NS, 1ST CHEMOTHERAPY
     Route: 042
  8. 0.9% SODIUM CHLORIDE INJECTION [Suspect]
     Active Substance: SODIUM CHLORIDE
     Dosage: PHARMORUBICIN + NS, 1ST CHEMOTHERAPY
     Route: 041
  9. 0.9% SODIUM CHLORIDE INJECTION [Suspect]
     Active Substance: SODIUM CHLORIDE
     Dosage: PHARMORUBICIN + NS, DOSE RE-INTRODUCED
     Route: 041
  10. PHARMORUBICIN [Suspect]
     Active Substance: EPIRUBICIN
     Dosage: PHARMORUBICIN + NS, 2ND CHEMOTHERAPY
     Route: 041
     Dates: start: 20190126, end: 20190126
  11. 0.9% SODIUM CHLORIDE INJECTION [Suspect]
     Active Substance: SODIUM CHLORIDE
     Dosage: ENDOXAN + NS, DOSE RE-INTRODUCED
     Route: 042
  12. 0.9% SODIUM CHLORIDE INJECTION [Suspect]
     Active Substance: SODIUM CHLORIDE
     Dosage: ENDOXAN + NS, 1ST CHEMOTHERAPY
     Route: 042
     Dates: start: 20190126, end: 20190126

REACTIONS (2)
  - Leukopenia [Recovered/Resolved]
  - Agranulocytosis [Recovered/Resolved]

NARRATIVE: CASE EVENT DATE: 20190206
